FAERS Safety Report 9244421 (Version 1)
Quarter: 2013Q2

REPORT INFORMATION
  Report Type: Spontaneous
  Country: SI (occurrence: SI)
  Receive Date: 20130422
  Receipt Date: 20130422
  Transmission Date: 20140414
  Serious: Yes (Death, Other)
  Sender: FDA-Public Use
  Company Number: SI-MILLENNIUM PHARMACEUTICALS, INC.-2013-02888

PATIENT
  Sex: 0

DRUGS (4)
  1. VELCADE [Suspect]
     Indication: PLASMA CELL MYELOMA
     Dosage: 1.3 MG/M2, UNK
     Route: 042
     Dates: start: 20110321
  2. REVLIMID [Suspect]
     Indication: PLASMA CELL MYELOMA
     Dosage: 25 UNK, UNK
     Route: 048
     Dates: start: 20111220, end: 20120921
  3. DEXAMETHASONE [Suspect]
     Indication: PLASMA CELL MYELOMA
     Dosage: 40 MG, UNK
     Route: 042
     Dates: start: 20110321, end: 20110728
  4. FEMARA [Concomitant]
     Indication: BREAST CANCER

REACTIONS (2)
  - Death [Fatal]
  - Breast cancer metastatic [Not Recovered/Not Resolved]
